FAERS Safety Report 15723873 (Version 5)
Quarter: 2020Q1

REPORT INFORMATION
  Report Type: Report from Study
  Country: FR (occurrence: FR)
  Receive Date: 20181214
  Receipt Date: 20200228
  Transmission Date: 20200409
  Serious: Yes (Hospitalization)
  Sender: FDA-Public Use
  Company Number: FR-EXELIXIS-XL18418017545

PATIENT
  Age: 72 Year
  Sex: Male
  Weight: 75 kg

DRUGS (13)
  1. ULTRA LEVURE [Concomitant]
     Active Substance: SACCHAROMYCES CEREVISIAE
  2. PRAVASTATINE [Concomitant]
     Active Substance: PRAVASTATIN
  3. BLINDED XL184 [Suspect]
     Active Substance: CABOZANTINIB
     Dosage: 60 OR 20 MG, QD
     Route: 048
     Dates: end: 20181108
  4. BISOPROLOL [Concomitant]
     Active Substance: BISOPROLOL
  5. DELICAL BOISSON FRUITEE [Concomitant]
  6. LEVOTHYROX [Concomitant]
     Active Substance: LEVOTHYROXINE
  7. INEXIUM [Concomitant]
     Active Substance: ESOMEPRAZOLE
  8. TARDYFERON [Concomitant]
     Active Substance: FERROUS SULFATE
  9. BLINDED XL184 [Suspect]
     Active Substance: CABOZANTINIB
     Dosage: 140 OR 60 MG, QD
     Route: 048
     Dates: start: 20180216
  10. ASPEGIC [Concomitant]
  11. LOPERAMIDE [Concomitant]
     Active Substance: LOPERAMIDE
  12. BLINDED XL184 [Suspect]
     Active Substance: CABOZANTINIB
     Dosage: 140 OR 60 MG, QD
     Route: 048
     Dates: start: 20180216
  13. BLINDED XL184 [Suspect]
     Active Substance: CABOZANTINIB
     Dosage: 60 OR 20 MG, QD
     Route: 048
     Dates: end: 20181108

REACTIONS (1)
  - Cardiac failure [Recovered/Resolved]

NARRATIVE: CASE EVENT DATE: 20181204
